FAERS Safety Report 5518174-8 (Version None)
Quarter: 2007Q4

REPORT INFORMATION
  Report Type: 
  Country: None (occurrence: None)
  Receive Date: 20071115
  Receipt Date: 20071107
  Transmission Date: 20080405
  Serious: Yes (Hospitalization, Other)
  Sender: FDA-Public Use
  Company Number: US-JNJFOC-20070605625

PATIENT
  Sex: Female
  Weight: 70.31 kg

DRUGS (5)
  1. REMICADE [Suspect]
     Indication: ANKYLOSING SPONDYLITIS
     Route: 042
  2. REMICADE [Suspect]
     Indication: CROHN'S DISEASE
     Route: 042
  3. PENTASA [Concomitant]
  4. PIROXICAM [Concomitant]
     Indication: ARTHRITIS
  5. VITAMIN CAP [Concomitant]

REACTIONS (1)
  - GASTROINTESTINAL STROMAL TUMOUR [None]
